FAERS Safety Report 6231827-1 (Version None)
Quarter: 2009Q2

REPORT INFORMATION
  Report Type: 
  Country: None (occurrence: None)
  Receive Date: 20090612
  Receipt Date: 20090529
  Transmission Date: 20091009
  Serious: Yes (Other)
  Sender: FDA-Public Use
  Company Number: 2009AL003785

PATIENT
  Age: 91 Year
  Sex: Female

DRUGS (7)
  1. FERROUS SULFATE DROPS (ALPHARMA) (FERROUS SULFATE DROPS (APLHARMA)) [Suspect]
     Indication: IRON DEFICIENCY
     Dosage: 200 MG;BID;PO
     Route: 048
     Dates: start: 20090425, end: 20090425
  2. CITALOPRAM HYDROBROMIDE [Concomitant]
  3. TAMOXIFEN CITRATE [Concomitant]
  4. FOLIC ACID [Concomitant]
  5. ENOXAPARIN SODIUM [Concomitant]
  6. LANSOPRAZOLE [Concomitant]
  7. ORAMORPH SR [Concomitant]

REACTIONS (1)
  - SWOLLEN TONGUE [None]
